FAERS Safety Report 5375624-8 (Version None)
Quarter: 2007Q2

REPORT INFORMATION
  Report Type: 
  Country: None (occurrence: None)
  Receive Date: 20070629
  Receipt Date: 20070619
  Transmission Date: 20071010
  Serious: Yes (Other)
  Sender: FDA-Public Use
  Company Number: FR-PFIZER INC-2007051693

PATIENT

DRUGS (1)
  1. CHAMPIX [Suspect]
     Indication: EX-SMOKER

REACTIONS (1)
  - VISUAL ACUITY REDUCED [None]
